FAERS Safety Report 17119063 (Version 1)
Quarter: 2019Q4

REPORT INFORMATION
  Report Type: Spontaneous
  Country: US (occurrence: US)
  Receive Date: 20191206
  Receipt Date: 20191206
  Transmission Date: 20200122
  Serious: No
  Sender: FDA-Public Use
  Company Number: US-UCBSA-2017035229

PATIENT
  Age: 54 Year
  Sex: Female

DRUGS (5)
  1. TRIHEXYPHENIDYL [Concomitant]
     Active Substance: TRIHEXYPHENIDYL
     Indication: MOVEMENT DISORDER
     Dosage: UNKNOWN DOSE
  2. LORAZEPAM. [Concomitant]
     Active Substance: LORAZEPAM
     Indication: MOVEMENT DISORDER
     Dosage: UNKNOWN DOSE
  3. LEVETIRACETAM. [Suspect]
     Active Substance: LEVETIRACETAM
     Indication: OFF LABEL USE
  4. DIAZEPAM. [Concomitant]
     Active Substance: DIAZEPAM
     Indication: MOVEMENT DISORDER
     Dosage: UNKNOWN DOSE
  5. LEVETIRACETAM. [Suspect]
     Active Substance: LEVETIRACETAM
     Indication: MOVEMENT DISORDER
     Dosage: 500 MG, 2X/DAY (BID)

REACTIONS (1)
  - No adverse event [Unknown]
